FAERS Safety Report 8857414 (Version 5)
Quarter: 2013Q1

REPORT INFORMATION
  Report Type: Spontaneous
  Country: AU (occurrence: AU)
  Receive Date: 20121024
  Receipt Date: 20130222
  Transmission Date: 20140127
  Serious: Yes (Hospitalization, Disabling, Other)
  Sender: FDA-Public Use
  Company Number: AU-ASTRAZENECA-2012SE78937

PATIENT
  Age: 76 Year
  Sex: Female
  Weight: 85.2 kg

DRUGS (9)
  1. CRESTOR [Suspect]
     Indication: BLOOD CHOLESTEROL INCREASED
     Dosage: TOOK 4 TABLETS
     Route: 048
     Dates: start: 201201, end: 201201
  2. CRESTOR [Suspect]
     Indication: BLOOD CHOLESTEROL INCREASED
     Dosage: TOOK 4 TABLETS
     Route: 048
     Dates: start: 201201, end: 201201
  3. CRESTOR [Suspect]
     Indication: BLOOD CHOLESTEROL INCREASED
     Route: 048
     Dates: start: 20120209, end: 20120212
  4. CRESTOR [Suspect]
     Indication: BLOOD CHOLESTEROL INCREASED
     Route: 048
     Dates: start: 20120209, end: 20120212
  5. METHOTREXATE [Suspect]
     Route: 065
  6. STATINS [Concomitant]
     Indication: BLOOD CHOLESTEROL INCREASED
     Route: 048
  7. ALDOMET [Concomitant]
     Indication: BLOOD PRESSURE ABNORMAL
  8. NORVASC [Concomitant]
     Indication: BLOOD PRESSURE ABNORMAL
  9. OROXINE [Concomitant]
     Indication: THYROID DISORDER

REACTIONS (4)
  - Psoriasis [Not Recovered/Not Resolved]
  - Pain [Unknown]
  - Diarrhoea [Unknown]
  - Vomiting [Unknown]
